FAERS Safety Report 7967118-8 (Version None)
Quarter: 2011Q4

REPORT INFORMATION
  Report Type: 
  Country: None (occurrence: None)
  Receive Date: 20111209
  Receipt Date: 20111129
  Transmission Date: 20120403
  Serious: Yes (Other)
  Sender: FDA-Public Use
  Company Number: US-BAYER-2010-003396

PATIENT
  Age: 21 Year
  Sex: Female
  Weight: 63.492 kg

DRUGS (3)
  1. YASMIN [Suspect]
     Indication: CONTRACEPTION
     Dosage: UNK
     Route: 048
     Dates: start: 20050301, end: 20080901
  2. COLESTID [Concomitant]
  3. ALIGN [Concomitant]

REACTIONS (8)
  - BILIARY DYSKINESIA [None]
  - FEAR [None]
  - CHOLECYSTITIS CHRONIC [None]
  - GASTROINTESTINAL PAIN [None]
  - INJURY [None]
  - ANXIETY [None]
  - CHOLELITHIASIS [None]
  - PAIN [None]
